FAERS Safety Report 12768832 (Version 1)
Quarter: 2016Q3

REPORT INFORMATION
  Report Type: Spontaneous
  Country: GB (occurrence: GB)
  Receive Date: 20160921
  Receipt Date: 20160921
  Transmission Date: 20161109
  Serious: Yes (Life-Threatening, Hospitalization, Disabling, Other)
  Sender: FDA-Public Use
  Company Number: GB-WARNER CHILCOTT, LLC-1057539

PATIENT
  Age: 21 Year
  Sex: Male
  Weight: 67.14 kg

DRUGS (5)
  1. 6-MP [Suspect]
     Active Substance: MERCAPTOPURINE
     Route: 048
     Dates: start: 20130701, end: 20160101
  2. GOLIMUMAB [Suspect]
     Active Substance: GOLIMUMAB
     Route: 058
     Dates: start: 20150201, end: 20150925
  3. AZATHIOPRINE. [Suspect]
     Active Substance: AZATHIOPRINE
     Route: 046
     Dates: start: 20130404, end: 20130606
  4. INFLIXIMAB [Suspect]
     Active Substance: INFLIXIMAB
     Route: 042
     Dates: start: 20151030, end: 20151215
  5. ASACOL [Suspect]
     Active Substance: MESALAMINE
     Indication: COLITIS ULCERATIVE
     Route: 048
     Dates: start: 20130404, end: 20151028

REACTIONS (7)
  - Fatigue [Unknown]
  - Acute monocytic leukaemia [Not Recovered/Not Resolved]
  - Neutropenia [Unknown]
  - Night sweats [Unknown]
  - Gingival bleeding [Unknown]
  - Drug ineffective [Unknown]
  - Rash [Unknown]

NARRATIVE: CASE EVENT DATE: 20160602
